FAERS Safety Report 25802660 (Version 1)
Quarter: 2025Q3

REPORT INFORMATION
  Report Type: Spontaneous
  Country: US (occurrence: None)
  Receive Date: 20250914
  Receipt Date: 20250914
  Transmission Date: 20251020
  Serious: Yes (Hospitalization)
  Sender: FDA-CTU
  Company Number: None

PATIENT
  Sex: Female

DRUGS (4)
  1. GLEEVEC [Suspect]
     Active Substance: IMATINIB MESYLATE
     Indication: Iron deficiency anaemia
     Dosage: FREQUENCY : DAILY;?
     Route: 048
     Dates: start: 20230524
  2. FUROSEMIDE [Concomitant]
     Active Substance: FUROSEMIDE
  3. IBUPROFEN [Concomitant]
     Active Substance: IBUPROFEN
  4. PROLIA [Concomitant]
     Active Substance: DENOSUMAB

REACTIONS (1)
  - Internal haemorrhage [None]
